FAERS Safety Report 11204042 (Version 1)
Quarter: 2015Q2

REPORT INFORMATION
  Report Type: Spontaneous
  Country: IN (occurrence: IN)
  Receive Date: 20150619
  Receipt Date: 20150619
  Transmission Date: 20150821
  Serious: Yes (Other)
  Sender: FDA-Public Use
  Company Number: PHHY2015IN072230

PATIENT
  Age: 68 Year
  Sex: Male

DRUGS (1)
  1. EXELON PATCH [Suspect]
     Active Substance: RIVASTIGMINE
     Indication: DEMENTIA ALZHEIMER^S TYPE
     Dosage: 10 CM (18 MG RIVASTIGMINE BASE / DAILY DOSE 9.5 M)
     Route: 062
     Dates: start: 20150209

REACTIONS (4)
  - Drug ineffective [Not Recovered/Not Resolved]
  - Application site rash [Recovering/Resolving]
  - Application site erythema [Recovering/Resolving]
  - Cerebral atrophy [Unknown]

NARRATIVE: CASE EVENT DATE: 20150209
